FAERS Safety Report 20211690 (Version 1)
Quarter: 2021Q4

REPORT INFORMATION
  Report Type: Spontaneous
  Country: GB (occurrence: GB)
  Receive Date: 20211221
  Receipt Date: 20211221
  Transmission Date: 20220303
  Serious: Yes (Other)
  Sender: FDA-Public Use
  Company Number: None

PATIENT
  Age: 54 Year
  Sex: Female

DRUGS (4)
  1. OLANZAPINE [Suspect]
     Active Substance: OLANZAPINE
     Indication: Ill-defined disorder
     Dosage: 10 MG
     Route: 048
     Dates: start: 202112
  2. OLANZAPINE [Suspect]
     Active Substance: OLANZAPINE
     Indication: Sleep deficit
     Dosage: 5 MG
     Route: 065
  3. OLANZAPINE [Suspect]
     Active Substance: OLANZAPINE
     Indication: Psychotic disorder
  4. ZOPICLONE [Concomitant]
     Active Substance: ZOPICLONE
     Indication: Ill-defined disorder
     Dosage: AUTHORIZATION/APPLICATION NUMBER: PL 00012/0334
     Route: 065

REACTIONS (1)
  - Adverse drug reaction [Unknown]

NARRATIVE: CASE EVENT DATE: 20211201
